FAERS Safety Report 18997213 (Version 1)
Quarter: 2021Q1

REPORT INFORMATION
  Report Type: Spontaneous
  Country: US (occurrence: US)
  Receive Date: 20210311
  Receipt Date: 20210311
  Transmission Date: 20210420
  Serious: Yes (Hospitalization)
  Sender: FDA-Public Use
  Company Number: None

PATIENT
  Age: 54 Year
  Sex: Female

DRUGS (15)
  1. CAPECITABINE. [Suspect]
     Active Substance: CAPECITABINE
     Indication: BREAST CANCER FEMALE
     Dosage: ?          OTHER FREQUENCY:BID X 14 DAYS;?
     Route: 048
     Dates: start: 20200610
  2. DEXAMETH [Concomitant]
     Active Substance: DEXAMETHASONE
  3. ROSUVAST [Concomitant]
  4. KEPPRA [Concomitant]
     Active Substance: LEVETIRACETAM
  5. PROTONIX [Concomitant]
     Active Substance: PANTOPRAZOLE SODIUM
  6. METFORM ER [Concomitant]
  7. NOVOLOG [Concomitant]
     Active Substance: INSULIN ASPART
  8. TOUJEO [Concomitant]
     Active Substance: INSULIN GLARGINE
  9. UNITHROID [Concomitant]
     Active Substance: LEVOTHYROXINE SODIUM
  10. AMITRIP [Concomitant]
     Active Substance: AMITRIPTYLINE HYDROCHLORIDE
  11. OXYCODONE [Concomitant]
     Active Substance: OXYCODONE
  12. CALCIPOTRIEN [Concomitant]
  13. ATIVAN [Concomitant]
     Active Substance: LORAZEPAM
  14. GABAPENT [Concomitant]
  15. ONDANSETRON [Concomitant]
     Active Substance: ONDANSETRON

REACTIONS (1)
  - Therapy interrupted [None]

NARRATIVE: CASE EVENT DATE: 20210108
